FAERS Safety Report 5122698-5 (Version None)
Quarter: 2006Q4

REPORT INFORMATION
  Report Type: 
  Country: None (occurrence: None)
  Receive Date: 20061009
  Receipt Date: 20060719
  Transmission Date: 20070319
  Serious: Yes (Hospitalization, Other)
  Sender: FDA-Public Use
  Company Number: BE-AMGEN-UK186758

PATIENT
  Sex: Female
  Weight: 75 kg

DRUGS (21)
  1. PALIFERMIN [Suspect]
     Indication: PERIPHERAL BLOOD STEM CELL APHERESIS
     Route: 042
     Dates: start: 20060710, end: 20060712
  2. CARMUSTINE [Concomitant]
     Route: 065
  3. ETOPOSIDE [Concomitant]
     Route: 065
  4. CYTARABINE [Concomitant]
     Route: 065
  5. METHOTREXATE [Concomitant]
     Route: 065
  6. MELPHALAN [Concomitant]
     Route: 065
  7. CISPLATIN [Concomitant]
     Route: 065
  8. NEUPOGEN [Concomitant]
     Route: 065
     Dates: start: 20060720, end: 20060729
  9. TPN [Concomitant]
     Route: 051
  10. CORSODYL [Concomitant]
     Route: 061
  11. LIDOCAINE [Concomitant]
     Route: 061
  12. NILSTAT [Concomitant]
     Route: 065
  13. MORPHINE [Concomitant]
     Route: 065
  14. ZOVIRAX [Concomitant]
  15. DIFLUCAN [Concomitant]
     Route: 065
  16. OFLOXACIN [Concomitant]
     Route: 042
  17. MAXIPIME [Concomitant]
     Route: 042
  18. AMIKIN [Concomitant]
     Route: 042
  19. VANCOMYCIN [Concomitant]
     Route: 042
  20. CLINDAMYCIN HCL [Concomitant]
     Route: 042
  21. ACETAMINOPHEN [Concomitant]
     Route: 042

REACTIONS (9)
  - BACTERAEMIA [None]
  - BURNING SENSATION [None]
  - CAPILLARY LEAK SYNDROME [None]
  - FEBRILE NEUTROPENIA [None]
  - FLUID RETENTION [None]
  - HYPERSENSITIVITY [None]
  - MUCOSAL INFLAMMATION [None]
  - RASH [None]
  - STOMATITIS [None]
